FAERS Safety Report 8934503 (Version 1)
Quarter: 2012Q4

REPORT INFORMATION
  Report Type: 
  Country: US (occurrence: US)
  Receive Date: 20121129
  Receipt Date: 20121129
  Transmission Date: 20130627
  Serious: No
  Sender: FDA-Public Use
  Company Number: US-GLAXOSMITHKLINE-A0958646A

PATIENT
  Age: 85 Year
  Sex: Female

DRUGS (5)
  1. FLOVENT [Suspect]
     Indication: COUGH
     Dosage: 1PUFF Twice per day
     Route: 055
     Dates: start: 201111
  2. BLOOD PRESSURE MEDICATION [Concomitant]
     Indication: HYPERTENSION
  3. NEXIUM [Concomitant]
  4. ANTIDEPRESSANT [Concomitant]
  5. UNKNOWN MEDICATION [Concomitant]
     Indication: BLADDER DISORDER

REACTIONS (4)
  - Cough [Unknown]
  - Drug ineffective [Unknown]
  - Increased upper airway secretion [Unknown]
  - Urine odour abnormal [Unknown]
